FAERS Safety Report 17820840 (Version 3)
Quarter: 2020Q2

REPORT INFORMATION
  Report Type: Report from Study
  Country: US (occurrence: US)
  Receive Date: 20200525
  Receipt Date: 20200629
  Transmission Date: 20200714
  Serious: Yes (Hospitalization)
  Sender: FDA-Public Use
  Company Number: US-ROCHE-2606286

PATIENT
  Age: 80 Year
  Sex: Female
  Weight: 93.07 kg

DRUGS (2)
  1. ALEVE [Concomitant]
     Active Substance: NAPROXEN SODIUM
     Indication: PAIN
     Route: 065
     Dates: start: 20191022
  2. ATEZOLIZUMAB. [Suspect]
     Active Substance: ATEZOLIZUMAB
     Indication: COLON CANCER METASTATIC
     Dosage: MOST RECENT DOSE RECEIVED ON 05/MAY/2020 PRIOR TO EVENT OSNET
     Route: 042
     Dates: start: 20191008

REACTIONS (1)
  - Immune-mediated pneumonitis [Recovering/Resolving]

NARRATIVE: CASE EVENT DATE: 20200519
